FAERS Safety Report 23720758 (Version 1)
Quarter: 2024Q2

REPORT INFORMATION
  Report Type: Spontaneous
  Country: US (occurrence: US)
  Receive Date: 20240409
  Receipt Date: 20240409
  Transmission Date: 20240716
  Serious: Yes (Other)
  Sender: FDA-Public Use
  Company Number: US-AMGEN-USASP2024067735

PATIENT
  Age: 69 Year

DRUGS (1)
  1. ENBREL [Suspect]
     Active Substance: ETANERCEPT
     Indication: Psoriasis
     Dosage: UNK
     Route: 065

REACTIONS (3)
  - Intracranial aneurysm [Unknown]
  - Aneurysm [Not Recovered/Not Resolved]
  - Skin atrophy [Not Recovered/Not Resolved]
